FAERS Safety Report 9931799 (Version 3)
Quarter: 2014Q3

REPORT INFORMATION
  Report Type: Spontaneous
  Country: IT (occurrence: IT)
  Receive Date: 20140228
  Receipt Date: 20140724
  Transmission Date: 20150326
  Serious: Yes (Other)
  Sender: FDA-Public Use
  Company Number: IT-MYLANLABS-2014S1003511

PATIENT
  Age: 63 Year
  Sex: Female

DRUGS (6)
  1. LORAZEPAM. [Suspect]
     Active Substance: LORAZEPAM
     Indication: PRODUCT USED FOR UNKNOWN INDICATION
     Dosage: 7.5 MG TOTAL
     Route: 048
     Dates: start: 20140114, end: 20140114
  2. DEPAKENE [Concomitant]
     Active Substance: VALPROIC ACID
     Indication: PRODUCT USED FOR UNKNOWN INDICATION
     Dosage: 1000 MG
     Route: 048
  3. LASIX [Concomitant]
     Active Substance: FUROSEMIDE
     Indication: PRODUCT USED FOR UNKNOWN INDICATION
     Dosage: 25 MG
     Route: 048
  4. CARDIOASPIRIN [Concomitant]
     Active Substance: ASPIRIN
     Indication: PRODUCT USED FOR UNKNOWN INDICATION
  5. LASITONE [Concomitant]
     Active Substance: FUROSEMIDE\SPIRONOLACTONE
     Indication: PRODUCT USED FOR UNKNOWN INDICATION
  6. LAMICTAL [Concomitant]
     Active Substance: LAMOTRIGINE
     Indication: GENERALISED TONIC-CLONIC SEIZURE
     Dosage: 200 MG
     Route: 048

REACTIONS (8)
  - Fall [Recovering/Resolving]
  - Psychomotor retardation [Unknown]
  - Oedema peripheral [Unknown]
  - Dysarthria [Unknown]
  - Confusional state [Recovering/Resolving]
  - Muscular weakness [Recovering/Resolving]
  - Asthenia [Unknown]
  - Overdose [Unknown]

NARRATIVE: CASE EVENT DATE: 20140114
